FAERS Safety Report 21155129 (Version 3)
Quarter: 2022Q3

REPORT INFORMATION
  Report Type: Report from Study
  Country: AR (occurrence: AR)
  Receive Date: 20220801
  Receipt Date: 20220826
  Transmission Date: 20221027
  Serious: Yes (Death, Hospitalization, Other)
  Sender: FDA-Public Use
  Company Number: AR-PINT-2022-Neratinib-074

PATIENT

DRUGS (9)
  1. NERLYNX [Suspect]
     Active Substance: NERATINIB
     Indication: HER2 positive breast cancer
     Dosage: 240 MG, DAILY
     Route: 048
     Dates: start: 20220425, end: 202207
  2. NERLYNX [Suspect]
     Active Substance: NERATINIB
     Dosage: 200 MG, DAILY
     Route: 048
     Dates: start: 202207
  3. LOPERAMIDE [Concomitant]
     Active Substance: LOPERAMIDE
     Indication: Product used for unknown indication
     Dosage: 1 TABLET EVERY 4HRS
  4. Bismuth cream [Concomitant]
     Indication: Product used for unknown indication
     Dosage: EVERY 4HRS
  5. TRAMADOL [Concomitant]
     Active Substance: TRAMADOL
     Indication: Product used for unknown indication
  6. ACETAMINOPHEN [Concomitant]
     Active Substance: ACETAMINOPHEN
     Indication: Product used for unknown indication
  7. DEXAMETHASONE [Concomitant]
     Active Substance: DEXAMETHASONE
     Indication: Product used for unknown indication
  8. PANTOPRAZOLE SODIUM [Concomitant]
     Active Substance: PANTOPRAZOLE SODIUM
     Indication: Product used for unknown indication
  9. Reliveran [Concomitant]
     Indication: Product used for unknown indication

REACTIONS (12)
  - Noninfective encephalitis [Unknown]
  - Gastrointestinal inflammation [Unknown]
  - Therapy interrupted [Recovered/Resolved]
  - Hospitalisation [Unknown]
  - Influenza [Unknown]
  - Abdominal pain [Unknown]
  - Back pain [Unknown]
  - Eating disorder [Unknown]
  - Constipation [Unknown]
  - Disease progression [Fatal]
  - Death [Fatal]
  - Drug ineffective [Fatal]

NARRATIVE: CASE EVENT DATE: 20220701
